FAERS Safety Report 4766141-4 (Version None)
Quarter: 2005Q3

REPORT INFORMATION
  Report Type: 
  Country: None (occurrence: None)
  Receive Date: 20050909
  Receipt Date: 20050824
  Transmission Date: 20060218
  Serious: Yes (Hospitalization)
  Sender: FDA-Public Use
  Company Number: WAES 0508USA04513

PATIENT
  Age: 72 Year
  Sex: Male

DRUGS (4)
  1. CANCIDAS [Suspect]
     Dosage: 50 MG/DAILY, IV
     Route: 042
     Dates: start: 20050803, end: 20050821
  2. DUOVENT [Concomitant]
  3. MEROPENEM [Concomitant]
  4. VANCOMYCIN HYDROCHLORIDE [Concomitant]

REACTIONS (4)
  - DISEASE PROGRESSION [None]
  - GENERAL PHYSICAL HEALTH DETERIORATION [None]
  - LUNG INFILTRATION [None]
  - RESPIRATORY FAILURE [None]
